FAERS Safety Report 25913885 (Version 1)
Quarter: 2025Q4

REPORT INFORMATION
  Report Type: Spontaneous
  Country: JP (occurrence: JP)
  Receive Date: 20251013
  Receipt Date: 20251013
  Transmission Date: 20260119
  Serious: Yes (Death, Other)
  Sender: AMGEN
  Company Number: JP-AMGEN-JPNSP2025199811

PATIENT

DRUGS (5)
  1. BEVACIZUMAB [Suspect]
     Active Substance: BEVACIZUMAB
     Indication: Rectal cancer
     Dosage: UNK
     Route: 065
  2. CAPECITABINE [Concomitant]
     Active Substance: CAPECITABINE
     Indication: Rectal cancer
  3. FLUOROURACIL [Concomitant]
     Active Substance: FLUOROURACIL
     Indication: Rectal cancer
  4. IRINOTECAN [Concomitant]
     Active Substance: IRINOTECAN
     Indication: Rectal cancer
  5. OXALIPLATIN [Concomitant]
     Active Substance: OXALIPLATIN
     Indication: Rectal cancer

REACTIONS (3)
  - Death [Fatal]
  - Rectal cancer recurrent [Unknown]
  - Post procedural complication [Unknown]
